FAERS Safety Report 14433555 (Version 1)
Quarter: 2018Q1

REPORT INFORMATION
  Report Type: Spontaneous
  Country: US (occurrence: US)
  Receive Date: 20180124
  Receipt Date: 20180124
  Transmission Date: 20180509
  Serious: No
  Sender: FDA-Public Use
  Company Number: US-PCCINC-T201702566

PATIENT

DRUGS (1)
  1. GABLOFEN [Suspect]
     Active Substance: BACLOFEN
     Indication: PRODUCT USED FOR UNKNOWN INDICATION
     Dosage: UNK
     Route: 037

REACTIONS (6)
  - Muscle tightness [Unknown]
  - Device issue [Recovered/Resolved]
  - Implant site extravasation [None]
  - Drug effect decreased [Unknown]
  - Withdrawal syndrome [Unknown]
  - Hypotonia [Unknown]

NARRATIVE: CASE EVENT DATE: 20170517
